FAERS Safety Report 23773587 (Version 2)
Quarter: 2024Q2

REPORT INFORMATION
  Report Type: Spontaneous
  Country: US (occurrence: US)
  Receive Date: 20240423
  Receipt Date: 20240522
  Transmission Date: 20240716
  Serious: Yes (Other)
  Sender: FDA-Public Use
  Company Number: US-JNJFOC-20240446058

PATIENT
  Age: 76 Year
  Sex: Male
  Weight: 111.23 kg

DRUGS (2)
  1. ERLEADA [Suspect]
     Active Substance: APALUTAMIDE
     Indication: Prostate cancer
     Dosage: 60 MG X4
     Route: 048
     Dates: start: 20240229, end: 20240402
  2. ERLEADA [Suspect]
     Active Substance: APALUTAMIDE
     Route: 048
     Dates: start: 20240410

REACTIONS (4)
  - Delirium [Recovered/Resolved]
  - Abnormal dreams [Recovered/Resolved]
  - Sensory disturbance [Recovered/Resolved]
  - Disorientation [Recovered/Resolved]

NARRATIVE: CASE EVENT DATE: 20240402
